FAERS Safety Report 7353853-1 (Version None)
Quarter: 2011Q1

REPORT INFORMATION
  Report Type: 
  Country: None (occurrence: None)
  Receive Date: 20110315
  Receipt Date: 20110304
  Transmission Date: 20110831
  Serious: Yes (Hospitalization, Other)
  Sender: FDA-Public Use
  Company Number: US-US-EMD SERONO, INC.-7045917

PATIENT
  Sex: Male
  Weight: 109 kg

DRUGS (3)
  1. EFFEXOR [Concomitant]
     Indication: ANXIETY
     Dates: end: 20110201
  2. REBIF [Suspect]
     Indication: MULTIPLE SCLEROSIS
     Route: 058
     Dates: start: 20091201, end: 20110201
  3. REBIF [Suspect]
     Route: 058
     Dates: start: 20110201

REACTIONS (8)
  - MYALGIA [None]
  - INFLUENZA LIKE ILLNESS [None]
  - AORTIC DILATATION [None]
  - INJECTION SITE ERYTHEMA [None]
  - DIZZINESS [None]
  - MULTIPLE SCLEROSIS RELAPSE [None]
  - NAUSEA [None]
  - HEPATIC ENZYME INCREASED [None]
